FAERS Safety Report 8338723-4 (Version None)
Quarter: 2012Q2

REPORT INFORMATION
  Report Type: 
  Country: None (occurrence: None)
  Receive Date: 20120504
  Receipt Date: 20120426
  Transmission Date: 20120825
  Serious: Yes (Life-Threatening)
  Sender: FDA-Public Use
  Company Number: FR-VALEANT-2012VX001995

PATIENT
  Sex: Male

DRUGS (2)
  1. ATROPINE [Suspect]
     Route: 065
     Dates: start: 20110101
  2. PROSTIGMIN BROMIDE [Suspect]
     Indication: NEUROMUSCULAR BLOCK PROLONGED
     Route: 065
     Dates: start: 20110101

REACTIONS (2)
  - CARDIAC ARREST [None]
  - BRADYCARDIA [None]
